FAERS Safety Report 11796579 (Version 4)
Quarter: 2016Q1

REPORT INFORMATION
  Report Type: Spontaneous
  Country: US (occurrence: US)
  Receive Date: 20151203
  Receipt Date: 20160222
  Transmission Date: 20160525
  Serious: No
  Sender: FDA-Public Use
  Company Number: US-VERTEX PHARMACEUTICALS-2015-005449

PATIENT
  Age: 37 Year
  Sex: Female

DRUGS (27)
  1. CREON [Concomitant]
     Active Substance: PANCRELIPASE AMYLASE\PANCRELIPASE LIPASE\PANCRELIPASE PROTEASE
  2. COLACE [Concomitant]
     Active Substance: DOCUSATE SODIUM
  3. VENTOLIN [Concomitant]
     Active Substance: ALBUTEROL SULFATE
  4. ADVAIR HFA [Concomitant]
     Active Substance: FLUTICASONE PROPIONATE\SALMETEROL XINAFOATE
  5. PROMETHAZINE [Concomitant]
     Active Substance: PROMETHAZINE\PROMETHAZINE HYDROCHLORIDE
  6. OXYCODONE [Concomitant]
     Active Substance: OXYCODONE
  7. FLONAX [Concomitant]
  8. PULMOZYME [Concomitant]
     Active Substance: DORNASE ALFA
  9. SENNA [Concomitant]
     Active Substance: SENNA LEAF\SENNOSIDES\SENNOSIDES A AND B
  10. OXYIR [Concomitant]
     Active Substance: OXYCODONE HYDROCHLORIDE
  11. SYNTHROID [Concomitant]
     Active Substance: LEVOTHYROXINE SODIUM
  12. NASONEX [Concomitant]
     Active Substance: MOMETASONE FUROATE
  13. ZITHROMAX [Concomitant]
     Active Substance: AZITHROMYCIN DIHYDRATE
  14. FLOVENT [Concomitant]
     Active Substance: FLUTICASONE PROPIONATE
  15. ATARAX [Concomitant]
     Active Substance: HYDROXYZINE\HYDROXYZINE HYDROCHLORIDE
  16. VALIUM [Concomitant]
     Active Substance: DIAZEPAM
  17. UROCIT [Concomitant]
  18. DIAZEPAM. [Concomitant]
     Active Substance: DIAZEPAM
  19. METHYLPREDNISOLONE. [Concomitant]
     Active Substance: METHYLPREDNISOLONE
  20. THEOPHYLLINE [Concomitant]
     Active Substance: THEOPHYLLINE ANHYDROUS
  21. HUMALOG [Concomitant]
     Active Substance: INSULIN LISPRO
  22. MEDROL [Concomitant]
     Active Substance: METHYLPREDNISOLONE
  23. LANTUS [Concomitant]
     Active Substance: INSULIN GLARGINE
  24. ORKAMBI [Suspect]
     Active Substance: IVACAFTOR\LUMACAFTOR
     Indication: CYSTIC FIBROSIS
     Dosage: 400/250 MG BID
     Route: 048
     Dates: start: 20151122, end: 20151124
  25. SINGULAIR [Concomitant]
     Active Substance: MONTELUKAST SODIUM
  26. OXYTOCIN. [Concomitant]
     Active Substance: OXYTOCIN
  27. CALCIUM [Concomitant]
     Active Substance: CALCIUM

REACTIONS (7)
  - Pulmonary pain [Recovered/Resolved]
  - Chest discomfort [Unknown]
  - Asthenia [Unknown]
  - Fatigue [Unknown]
  - Chest pain [Unknown]
  - Infective pulmonary exacerbation of cystic fibrosis [Unknown]
  - Dyspnoea [Unknown]

NARRATIVE: CASE EVENT DATE: 201511
